FAERS Safety Report 9816526 (Version 2)
Quarter: 2014Q1

REPORT INFORMATION
  Report Type: Spontaneous
  Country: US (occurrence: US)
  Receive Date: 20140114
  Receipt Date: 20140317
  Transmission Date: 20141002
  Serious: Yes (Hospitalization, Other)
  Sender: FDA-Public Use
  Company Number: US-BAXTER-2014BAX001125

PATIENT
  Sex: Male

DRUGS (3)
  1. DIANEAL PD2 [Suspect]
     Indication: PERITONEAL DIALYSIS
     Route: 033
     Dates: start: 201304
  2. DIANEAL PD2 [Suspect]
     Indication: PERITONEAL DIALYSIS
     Route: 033
  3. EXTRANEAL [Suspect]
     Indication: PERITONEAL DIALYSIS
     Route: 033
     Dates: start: 201304

REACTIONS (8)
  - Staphylococcal infection [Not Recovered/Not Resolved]
  - Catheter site infection [Not Recovered/Not Resolved]
  - Peritonitis bacterial [Recovered/Resolved]
  - Hypotension [Unknown]
  - Peritonitis [Recovering/Resolving]
  - Peritoneal dialysis complication [Unknown]
  - Wound [Unknown]
  - Blister rupture [Unknown]
